FAERS Safety Report 5709641-2 (Version None)
Quarter: 2008Q2

REPORT INFORMATION
  Report Type: 
  Country: None (occurrence: None)
  Receive Date: 20080418
  Receipt Date: 20080416
  Transmission Date: 20081010
  Serious: Yes (Other)
  Sender: FDA-Public Use
  Company Number: B0516827A

PATIENT
  Age: 63 Year
  Sex: Male

DRUGS (4)
  1. ROSIGLITAZONE MALEATE [Suspect]
     Dosage: 8MG UNKNOWN
     Route: 065
  2. ASPIRIN [Concomitant]
  3. ATORVASTATIN [Concomitant]
  4. METFORMIN HCL [Concomitant]

REACTIONS (1)
  - MYOCARDIAL ISCHAEMIA [None]
